FAERS Safety Report 22124141 (Version 1)
Quarter: 2023Q1

REPORT INFORMATION
  Report Type: Report from Study
  Country: US (occurrence: US)
  Receive Date: 20230322
  Receipt Date: 20230322
  Transmission Date: 20230418
  Serious: Yes (Other)
  Sender: FDA-Public Use
  Company Number: US-VALIDUS PHARMACEUTICALS LLC-US-VDP-2023-015996

PATIENT

DRUGS (18)
  1. FUROSEMIDE [Suspect]
     Active Substance: FUROSEMIDE
     Indication: Product used for unknown indication
     Dosage: UNK
     Route: 065
  2. FUROSEMIDE [Suspect]
     Active Substance: FUROSEMIDE
     Dosage: 3 TAB
     Route: 065
  3. REMODULIN [Suspect]
     Active Substance: TREPROSTINIL
     Indication: Pulmonary arterial hypertension
     Dosage: UNK
     Route: 058
     Dates: start: 20210908
  4. REMODULIN [Suspect]
     Active Substance: TREPROSTINIL
     Dosage: 0.043 MICROGRAM/KILOGRAM
     Route: 058
  5. REMODULIN [Suspect]
     Active Substance: TREPROSTINIL
     Dosage: 0.046 MICROGRAM/KILOGRAM
     Route: 058
  6. REMODULIN [Suspect]
     Active Substance: TREPROSTINIL
     Dosage: UNK (DOSE INCREASED)
     Route: 058
     Dates: start: 20230107
  7. REMODULIN [Suspect]
     Active Substance: TREPROSTINIL
     Dosage: 0.049 MICROGRAM/KILOGRAM
     Route: 058
     Dates: start: 202301
  8. REMODULIN [Suspect]
     Active Substance: TREPROSTINIL
     Dosage: 0.052 MICROGRAM/KILOGRAM
     Route: 058
     Dates: end: 20230303
  9. REMODULIN [Suspect]
     Active Substance: TREPROSTINIL
     Dosage: UNK
     Route: 058
     Dates: start: 20230303
  10. POTASSIUM [Suspect]
     Active Substance: POTASSIUM
     Indication: Product used for unknown indication
     Dosage: UNK
     Route: 065
  11. VANCOMYCIN HYDROCHLORIDE [Suspect]
     Active Substance: VANCOMYCIN HYDROCHLORIDE
     Indication: Diarrhoea
     Dosage: UNK
     Route: 065
     Dates: start: 2022, end: 202212
  12. CHLORPHENIRAMINE MALEATE [Suspect]
     Active Substance: CHLORPHENIRAMINE MALEATE
     Indication: Product used for unknown indication
     Dosage: UNK
     Route: 065
  13. GABAPENTIN [Suspect]
     Active Substance: GABAPENTIN
     Indication: Infusion site pain
     Dosage: UNK
     Route: 065
  14. DIAZEPAM [Suspect]
     Active Substance: DIAZEPAM
     Indication: Product used for unknown indication
     Dosage: UNK
     Route: 065
  15. IBUPROFEN [Suspect]
     Active Substance: IBUPROFEN
     Indication: Infusion site pain
     Dosage: UNK
     Route: 065
  16. PEPCID [Suspect]
     Active Substance: FAMOTIDINE
     Indication: Product used for unknown indication
     Dosage: UNK
     Route: 065
  17. OPSUMIT [Suspect]
     Active Substance: MACITENTAN
     Indication: Product used for unknown indication
     Dosage: UNK
     Route: 065
  18. OPSUMIT [Suspect]
     Active Substance: MACITENTAN
     Dosage: UNK (DOSE INCREASED)
     Route: 065
     Dates: start: 202302

REACTIONS (39)
  - Clostridium difficile infection [Not Recovered/Not Resolved]
  - Limb discomfort [Unknown]
  - Nerve compression [Unknown]
  - Fatigue [Unknown]
  - Cough [Not Recovered/Not Resolved]
  - Chest discomfort [Recovering/Resolving]
  - Dyspnoea [Unknown]
  - Feeling abnormal [Not Recovered/Not Resolved]
  - Illness [Recovering/Resolving]
  - Throat tightness [Recovering/Resolving]
  - Dry mouth [Not Recovered/Not Resolved]
  - Somnolence [Unknown]
  - Feeling hot [Unknown]
  - Hyperhidrosis [Unknown]
  - Weight decreased [Unknown]
  - Flushing [Unknown]
  - Retching [Unknown]
  - Neck pain [Unknown]
  - Grip strength decreased [Unknown]
  - Fine motor skill dysfunction [Unknown]
  - Pain in extremity [Unknown]
  - Nasal dryness [Unknown]
  - Joint swelling [Not Recovered/Not Resolved]
  - Infusion site discomfort [Unknown]
  - Device power source issue [Unknown]
  - Infusion site pain [Unknown]
  - Infection [Recovering/Resolving]
  - Device maintenance issue [Unknown]
  - Device dislocation [Unknown]
  - Device malfunction [Unknown]
  - Infusion site erythema [Unknown]
  - Infusion site induration [Unknown]
  - Infusion site swelling [Unknown]
  - Product administration interrupted [Unknown]
  - Dizziness [Unknown]
  - Asthenia [Unknown]
  - Decreased appetite [Unknown]
  - Diarrhoea [Unknown]
  - Vomiting [Unknown]

NARRATIVE: CASE EVENT DATE: 20220101
